FAERS Safety Report 24386189 (Version 1)
Quarter: 2024Q4

REPORT INFORMATION
  Report Type: Spontaneous
  Country: EU (occurrence: EU)
  Receive Date: 20241001
  Receipt Date: 20241001
  Transmission Date: 20250114
  Serious: Yes (Other)
  Sender: BAUSCH AND LOMB
  Company Number: ES-ALCON LABORATORIES-ALC2024ES004173

PATIENT

DRUGS (17)
  1. PHENYLEPHRINE HYDROCHLORIDE [Suspect]
     Active Substance: PHENYLEPHRINE HYDROCHLORIDE
     Indication: Cataract operation
     Dosage: 100 MG/ML
     Route: 065
  2. POVIDONE-IODINE [Suspect]
     Active Substance: POVIDONE-IODINE
     Indication: Preoperative care
     Dosage: 50 MG/ML (2 ML)
     Route: 065
  3. POVIDONE-IODINE [Suspect]
     Active Substance: POVIDONE-IODINE
     Indication: Postoperative care
     Dosage: UNK
  4. LIDOCAINE HYDROCHLORIDE [Suspect]
     Active Substance: LIDOCAINE HYDROCHLORIDE
     Indication: Postoperative care
     Dosage: UNK
     Route: 065
  5. LIDOCAINE HYDROCHLORIDE [Suspect]
     Active Substance: LIDOCAINE HYDROCHLORIDE
     Indication: Preoperative care
     Dosage: 50 ML/MG INJECTABLE 500 MG/10 ML
     Route: 065
  6. LIDOCAINE HYDROCHLORIDE [Suspect]
     Active Substance: LIDOCAINE HYDROCHLORIDE
     Indication: Cataract operation
     Dosage: 20 MG/ML INJECTABLE 200 MG/10 ML
     Dates: start: 20240723, end: 20240723
  7. BENOXINATE HYDROCHLORIDE\TETRACAINE HYDROCHLORIDE [Suspect]
     Active Substance: BENOXINATE HYDROCHLORIDE\TETRACAINE HYDROCHLORIDE
     Indication: Cataract operation
     Dosage: 1 MG/ML + 4 MG/ML
     Route: 065
  8. CALCIUM CHLORIDE\HETASTARCH\MAGNESIUM CHLORIDE\POTASSIUM CHLORIDE\SODI [Suspect]
     Active Substance: CALCIUM CHLORIDE\HETASTARCH\MAGNESIUM CHLORIDE\POTASSIUM CHLORIDE\SODIUM ACETATE\SODIUM CHLORIDE
     Indication: Cataract operation
     Dosage: UNK
     Route: 021
  9. MOXIFLOXACIN HYDROCHLORIDE [Suspect]
     Active Substance: MOXIFLOXACIN HYDROCHLORIDE
     Indication: Cataract operation
     Dosage: UNK
     Route: 065
  10. EPINEPHRINE [Suspect]
     Active Substance: EPINEPHRINE
     Indication: Cataract operation
     Dosage: AMPOULE 1 MG/ML
     Route: 021
  11. TROPICAMIDE [Suspect]
     Active Substance: TROPICAMIDE
     Indication: Cataract operation
     Dosage: 10 MG/ML
     Route: 065
  12. DEXAMETHASONE [Suspect]
     Active Substance: DEXAMETHASONE
     Indication: Postoperative care
     Dosage: UNK
     Route: 065
  13. SODIUM CHLORIDE [Concomitant]
     Active Substance: SODIUM CHLORIDE
     Indication: Cataract operation
     Dosage: 5 ML
     Route: 031
     Dates: start: 20240723, end: 20240723
  14. PHENYLEPHRINE HYDROCHLORIDE [Concomitant]
     Active Substance: PHENYLEPHRINE HYDROCHLORIDE
     Indication: Cataract operation
     Dosage: 2 ML VIAL
     Route: 065
     Dates: start: 20240723, end: 20240723
  15. CEFUROXIME SODIUM [Concomitant]
     Active Substance: CEFUROXIME SODIUM
     Indication: Cataract operation
     Dosage: 50 MG POWDER RECONSTITUTED WITH 5ML OF SODIUM CHLORIDE INJECTABLE SOLUTION.
     Route: 021
     Dates: start: 20240723, end: 20240723
  16. HYALURONATE SODIUM,CHONDROITIN SULFATE SODIUM [Concomitant]
     Indication: Cataract operation
     Dosage: UNKNOWN
     Route: 021
     Dates: start: 20240723, end: 20240723
  17. POVIDONE-IODINE [Concomitant]
     Active Substance: POVIDONE-IODINE
     Indication: Cataract operation
     Dosage: 100 MG/ML
     Dates: start: 20240723, end: 20240723

REACTIONS (1)
  - Endophthalmitis [Not Recovered/Not Resolved]
